FAERS Safety Report 12817183 (Version 1)
Quarter: 2016Q4

REPORT INFORMATION
  Report Type: Spontaneous
  Country: FR (occurrence: FR)
  Receive Date: 20161006
  Receipt Date: 20161006
  Transmission Date: 20170207
  Serious: Yes (Hospitalization, Other)
  Sender: FDA-Public Use
  Company Number: FR-BRISTOL-MYERS SQUIBB COMPANY-BMS-2016-080419

PATIENT
  Age: 77 Year
  Sex: Male

DRUGS (1)
  1. COUMADINE [Suspect]
     Active Substance: WARFARIN SODIUM
     Indication: ATRIAL FIBRILLATION
     Dosage: 1 UNK, UNK, 2 MG ON DAY 1 AND 3 MG ON DAY 2
     Route: 048
     Dates: end: 20160602

REACTIONS (8)
  - Portal hypertension [Unknown]
  - Varices oesophageal [Unknown]
  - Oesophageal variceal ligation [Unknown]
  - Packed red blood cell transfusion [Unknown]
  - Rectal haemorrhage [Recovered/Resolved]
  - Haemorrhagic anaemia [Recovered/Resolved]
  - Haematemesis [Recovered/Resolved]
  - Haemorrhoids [Unknown]

NARRATIVE: CASE EVENT DATE: 20160527
